FAERS Safety Report 4699798-7 (Version None)
Quarter: 2005Q2

REPORT INFORMATION
  Report Type: 
  Country: None (occurrence: None)
  Receive Date: 20050623
  Receipt Date: 20050615
  Transmission Date: 20051028
  Serious: Yes (Hospitalization, Other)
  Sender: FDA-Public Use
  Company Number: 2005064470

PATIENT
  Sex: Female

DRUGS (10)
  1. BEXTRA [Suspect]
     Indication: ARTHRITIS
     Dosage: 20 MG (10 MG, 2 IN 1 D), ORAL
     Route: 048
     Dates: start: 20040201
  2. CELEBREX [Suspect]
     Indication: ARTHRITIS
     Dosage: 200 MG (200 MG, 1 IN 1 D), ORAL
     Route: 048
     Dates: start: 20030101
  3. HYDROCHLOROTHIAZIDE [Concomitant]
  4. GEMFIBROZIL [Concomitant]
  5. OMEPRAZOLE [Concomitant]
  6. VITAMIN E [Concomitant]
  7. VITAMIN B COMPLEX CAP [Concomitant]
  8. CALCIUM WITH VITAMIN D (CALCIUM PHOSPHATE, CALCIUM SODIUM LACTATE, ERG [Concomitant]
  9. VITAMIN C (VITAMIN C) [Concomitant]
  10. TYLENOL SINUS (PARACETAMOL, PSEUDOEPHEDRINE  HYDROCHLORIDE) [Concomitant]

REACTIONS (6)
  - ANGER [None]
  - ARTHRITIS [None]
  - BLOOD CHOLESTEROL INCREASED [None]
  - CONDITION AGGRAVATED [None]
  - DRUG INEFFECTIVE [None]
  - FEELING ABNORMAL [None]
